FAERS Safety Report 15895842 (Version 1)
Quarter: 2019Q1

REPORT INFORMATION
  Report Type: Spontaneous
  Country: US (occurrence: US)
  Receive Date: 20190109
  Receipt Date: 20190109
  Transmission Date: 20190417
  Serious: No
  Sender: FDA-Public Use
  Company Number: None

PATIENT
  Age: 63 Year
  Sex: Male
  Weight: 94.8 kg

DRUGS (2)
  1. ENABLEX [Suspect]
     Active Substance: DARIFENACIN HYDROBROMIDE
     Indication: URINARY INCONTINENCE
     Dosage: ?          OTHER DOSE:75MG + 15MG;?
     Route: 048
     Dates: start: 20180419, end: 20180607
  2. OXYBUTYNIN. [Suspect]
     Active Substance: OXYBUTYNIN CHLORIDE
     Indication: URINARY INCONTINENCE
     Dosage: ?          OTHER DOSE:5MG + 15MG;?
     Route: 048
     Dates: start: 20150625, end: 20180729

REACTIONS (2)
  - Insurance issue [None]
  - Drug ineffective [None]
